FAERS Safety Report 16311733 (Version 3)
Quarter: 2019Q2

REPORT INFORMATION
  Report Type: Report from Study
  Country: PL (occurrence: PL)
  Receive Date: 20190514
  Receipt Date: 20190606
  Transmission Date: 20190711
  Serious: No
  Sender: FDA-Public Use
  Company Number: PL-REGENERON PHARMACEUTICALS, INC.-2019-31444

PATIENT

DRUGS (9)
  1. METOPROLOL TARTRATE. [Concomitant]
     Active Substance: METOPROLOL TARTRATE
     Indication: MYOCARDIAL INFARCTION
     Dosage: 23.75 MG, QD
     Route: 048
     Dates: start: 2015
  2. ESPIRO [Concomitant]
     Indication: MYOCARDIAL INFARCTION
     Dosage: 25 MG, QD
     Route: 048
     Dates: start: 2016
  3. ORTANOL                            /00661201/ [Concomitant]
     Active Substance: OMEPRAZOLE
     Indication: ANAEMIA
     Route: 048
  4. POLSART [Concomitant]
     Indication: MYOCARDIAL INFARCTION
     Dosage: 40 MG, BID
     Route: 048
     Dates: start: 2015
  5. ZAHRON [Concomitant]
     Active Substance: ROSUVASTATIN CALCIUM
     Indication: MYOCARDIAL INFARCTION
     Dosage: 40 MG, QD
     Route: 048
     Dates: start: 2015
  6. CEMIPLIMAB [Suspect]
     Active Substance: CEMIPLIMAB
     Indication: NON-SMALL CELL LUNG CANCER STAGE IV
     Dosage: 350 MG, Q3W
     Route: 042
     Dates: start: 20190305
  7. ACARD [Concomitant]
     Active Substance: ASPIRIN
     Indication: MYOCARDIAL INFARCTION
     Dosage: 75 MG, QD
     Route: 048
     Dates: start: 2015
  8. POLTRAM COMBO [Concomitant]
     Active Substance: ACETAMINOPHEN\TRAMADOL HYDROCHLORIDE
     Indication: ANAEMIA
     Dosage: 37.5 MG, UNK
     Route: 048
  9. IPP                                /01263204/ [Concomitant]
     Indication: PROPHYLAXIS
     Dosage: 20 MG, QD
     Route: 048
     Dates: start: 2015

REACTIONS (1)
  - Blood creatine increased [Recovered/Resolved]

NARRATIVE: CASE EVENT DATE: 20190509
